FAERS Safety Report 21655189 (Version 1)
Quarter: 2022Q4

REPORT INFORMATION
  Report Type: Spontaneous
  Country: US (occurrence: US)
  Receive Date: 20221129
  Receipt Date: 20221129
  Transmission Date: 20230113
  Serious: Yes (Other)
  Sender: FDA-Public Use
  Company Number: US-STRIDES ARCOLAB LIMITED-2021SP031216

PATIENT
  Age: 12 Year
  Sex: Male

DRUGS (8)
  1. GABAPENTIN [Suspect]
     Active Substance: GABAPENTIN
     Indication: Pain in extremity
     Dosage: UNK
     Route: 065
  2. LIDOCAINE [Suspect]
     Active Substance: LIDOCAINE
     Indication: Complex regional pain syndrome
     Dosage: UNK
     Route: 065
  3. TIAGABINE [Suspect]
     Active Substance: TIAGABINE
     Indication: Pain in extremity
     Dosage: UNK
     Route: 065
  4. KETAMINE [Suspect]
     Active Substance: KETAMINE
     Indication: Complex regional pain syndrome
     Dosage: UNK
     Route: 065
  5. CANNABIDIOL [Suspect]
     Active Substance: CANNABIDIOL
     Indication: Complex regional pain syndrome
     Dosage: UNK
     Route: 065
  6. PREGABALIN [Suspect]
     Active Substance: PREGABALIN
     Indication: Complex regional pain syndrome
     Dosage: UNK
     Route: 065
  7. DULOXETINE [Suspect]
     Active Substance: DULOXETINE
     Indication: Complex regional pain syndrome
     Dosage: UNK
     Route: 065
  8. TRAMADOL [Suspect]
     Active Substance: TRAMADOL
     Indication: Complex regional pain syndrome
     Dosage: UNK
     Route: 065

REACTIONS (4)
  - Abnormal behaviour [Unknown]
  - Sedation [Unknown]
  - Drug ineffective [Unknown]
  - Off label use [Unknown]
